FAERS Safety Report 9951257 (Version 1)
Quarter: 2014Q1

REPORT INFORMATION
  Report Type: Spontaneous
  Country: PR (occurrence: PR)
  Receive Date: 20140304
  Receipt Date: 20140304
  Transmission Date: 20141002
  Serious: No
  Sender: FDA-Public Use
  Company Number: PR-ABBVIE-13P-131-1070757-00

PATIENT
  Age: 62 Year
  Sex: Male
  Weight: 85.35 kg

DRUGS (7)
  1. HUMIRA [Suspect]
     Indication: RHEUMATOID ARTHRITIS
     Route: 058
     Dates: start: 201207, end: 20130310
  2. HUMIRA [Suspect]
     Indication: PSORIASIS
  3. MEDICATED CREAM [Concomitant]
     Indication: PSORIASIS
     Route: 061
     Dates: start: 201207
  4. GLIPIZIDE [Concomitant]
     Indication: DIABETES MELLITUS
     Route: 048
  5. METFORMIN [Concomitant]
     Indication: DIABETES MELLITUS
     Route: 048
  6. UNKNOWN MEDICATION [Concomitant]
     Indication: HYPERTENSION
     Route: 048
  7. UNKNOWN MEDICATION [Concomitant]
     Indication: HYPERCHOLESTEROLAEMIA
     Route: 048

REACTIONS (1)
  - Nasopharyngitis [Recovering/Resolving]
